FAERS Safety Report 21794708 (Version 1)
Quarter: 2022Q4

REPORT INFORMATION
  Report Type: Spontaneous
  Country: US (occurrence: US)
  Receive Date: 20221229
  Receipt Date: 20221229
  Transmission Date: 20230113
  Serious: Yes (Other)
  Sender: FDA-Public Use
  Company Number: US-IMPEL PHARMACEUTICALS INC-2022-SPO-TR-0066

PATIENT

DRUGS (2)
  1. TRUDHESA [Suspect]
     Active Substance: DIHYDROERGOTAMINE MESYLATE
     Indication: Migraine
     Dosage: 1.45 MILLIGRAM, SINGLE
     Route: 045
  2. AJOVY [Suspect]
     Active Substance: FREMANEZUMAB-VFRM
     Indication: Migraine prophylaxis

REACTIONS (6)
  - Anaphylactic reaction [Recovered/Resolved]
  - Swelling face [Recovered/Resolved]
  - Nasal congestion [Recovered/Resolved]
  - Secretion discharge [Recovered/Resolved]
  - Dyspnoea [Recovered/Resolved]
  - Expired product administered [Unknown]

NARRATIVE: CASE EVENT DATE: 20221215
